FAERS Safety Report 7158129-3 (Version None)
Quarter: 2010Q4

REPORT INFORMATION
  Report Type: 
  Country: None (occurrence: None)
  Receive Date: 20101214
  Receipt Date: 20100429
  Transmission Date: 20110411
  Serious: No
  Sender: FDA-Public Use
  Company Number: US-ASTRAZENECA-2010SE19425

PATIENT
  Sex: Male
  Weight: 120.2 kg

DRUGS (2)
  1. CRESTOR [Suspect]
     Indication: HYPERCHLORAEMIA
     Route: 048
  2. HYZAAR [Concomitant]
     Indication: BLOOD PRESSURE

REACTIONS (3)
  - CHEST PAIN [None]
  - OSTEOSCLEROSIS [None]
  - PAIN IN EXTREMITY [None]
